FAERS Safety Report 17839213 (Version 1)
Quarter: 2020Q2

REPORT INFORMATION
  Report Type: Spontaneous
  Country: US (occurrence: US)
  Receive Date: 20200529
  Receipt Date: 20200529
  Transmission Date: 20200714
  Serious: No
  Sender: FDA-Public Use
  Company Number: US-TEVA-2020-US-1240125

PATIENT
  Sex: Female

DRUGS (3)
  1. AUSTEDO [Suspect]
     Active Substance: DEUTETRABENAZINE
     Indication: TARDIVE DYSKINESIA
     Dosage: 36 MILLIGRAM DAILY; 18 MG IN THE MORNING AND 18 MG IN THE EVENING
     Route: 065
  2. XANAX [Concomitant]
     Active Substance: ALPRAZOLAM
  3. AUSTEDO [Suspect]
     Active Substance: DEUTETRABENAZINE
     Dosage: 24 MG IN THE MORNING AND 18 MG AT NIGHT
     Route: 065

REACTIONS (4)
  - Drug ineffective [Unknown]
  - Dysuria [Unknown]
  - Mental disorder [Unknown]
  - Chest pain [Unknown]
